FAERS Safety Report 16599021 (Version 1)
Quarter: 2019Q3

REPORT INFORMATION
  Report Type: Spontaneous
  Country: FR (occurrence: FR)
  Receive Date: 20190719
  Receipt Date: 20190719
  Transmission Date: 20191004
  Serious: Yes (Other)
  Sender: FDA-Public Use
  Company Number: FR-ACELRX PHARMACEUTICALS, INC-ACEL20192320

PATIENT
  Age: 38 Year
  Sex: Male

DRUGS (3)
  1. DOLIPRANE [Concomitant]
     Active Substance: ACETAMINOPHEN
     Indication: PRODUCT USED FOR UNKNOWN INDICATION
     Dosage: UNKNOWN
     Route: 065
  2. ACUPAN [Concomitant]
     Active Substance: NEFOPAM HYDROCHLORIDE
     Indication: PRODUCT USED FOR UNKNOWN INDICATION
     Dosage: UNKNOWN
     Route: 065
  3. ZALVISO [Suspect]
     Active Substance: SUFENTANIL CITRATE
     Indication: PROCEDURAL PAIN
     Dosage: UNKNOWN
     Route: 060
     Dates: start: 20190705, end: 20190707

REACTIONS (4)
  - Withdrawal syndrome [Recovered/Resolved]
  - Hallucination [Recovered/Resolved]
  - Delirium [Recovered/Resolved]
  - Overdose [None]

NARRATIVE: CASE EVENT DATE: 20190707
